FAERS Safety Report 8455758 (Version 3)
Quarter: 2013Q1

REPORT INFORMATION
  Report Type: Spontaneous
  Country: US (occurrence: US)
  Receive Date: 20120313
  Receipt Date: 20130321
  Transmission Date: 20140127
  Serious: Yes (Hospitalization, Congenital Anomaly, Other)
  Sender: FDA-Public Use
  Company Number: US-PFIZER INC-2012048308

PATIENT
  Sex: Male
  Weight: 3.7 kg

DRUGS (5)
  1. ZOLOFT [Suspect]
     Indication: ANXIETY
     Dosage: UNK
     Route: 064
     Dates: start: 20040608, end: 2007
  2. ZOLOFT [Suspect]
     Indication: DEPRESSION
     Dosage: 50 MG,
     Route: 064
     Dates: start: 20050516
  3. ZOLOFT [Suspect]
     Indication: AFFECTIVE DISORDER
     Dosage: 100 MG,
     Route: 064
     Dates: start: 20050909
  4. VITAMIN C [Concomitant]
     Dosage: 500 MG, UNK
     Route: 064
  5. PRENATAL VITAMINS [Concomitant]
     Dosage: UNK
     Route: 064

REACTIONS (7)
  - Maternal exposure timing unspecified [Unknown]
  - Aortic valve incompetence [Recovered/Resolved]
  - Aortic stenosis [Unknown]
  - Tricuspid valve incompetence [Unknown]
  - Cardiomegaly [Unknown]
  - Left ventricular hypertrophy [Unknown]
  - Congenital anomaly [Unknown]
